FAERS Safety Report 6211584-5 (Version None)
Quarter: 2009Q2

REPORT INFORMATION
  Report Type: 
  Country: None (occurrence: None)
  Receive Date: 20090528
  Receipt Date: 20090520
  Transmission Date: 20091009
  Serious: Yes (Hospitalization)
  Sender: FDA-Public Use
  Company Number: 2009SP001243

PATIENT
  Age: 40 Year
  Sex: Male
  Weight: 77.1 kg

DRUGS (4)
  1. LUNESTA [Suspect]
     Indication: INSOMNIA
     Dosage: PRN; ORAL
     Route: 048
     Dates: start: 20070101, end: 20070101
  2. ANXIOLYTICS [Concomitant]
  3. ANTIDEPRESSANTS [Concomitant]
  4. PREV MEDS [Concomitant]

REACTIONS (6)
  - ALCOHOL USE [None]
  - CERVICAL VERTEBRAL FRACTURE [None]
  - DISLOCATION OF VERTEBRA [None]
  - SOMNAMBULISM [None]
  - SUICIDAL BEHAVIOUR [None]
  - SUICIDAL IDEATION [None]
